FAERS Safety Report 26089337 (Version 1)
Quarter: 2025Q4

REPORT INFORMATION
  Report Type: Report from Study
  Country: EG (occurrence: EG)
  Receive Date: 20251125
  Receipt Date: 20251125
  Transmission Date: 20260118
  Serious: Yes (Death, Hospitalization)
  Sender: ELI LILLY AND COMPANY
  Company Number: EG-ELI_LILLY_AND_COMPANY-EG202510021838

PATIENT
  Age: 71 Year
  Sex: Female

DRUGS (8)
  1. VERZENIO [Suspect]
     Active Substance: ABEMACICLIB
     Indication: Breast cancer
     Dosage: 100 MG, DAILY
     Route: 048
     Dates: start: 20251001, end: 20251007
  2. VERZENIO [Suspect]
     Active Substance: ABEMACICLIB
     Dosage: 100 MG, BID
     Route: 048
     Dates: start: 20251008, end: 20251015
  3. METFORMIN HYDROCHLORIDE\VILDAGLIPTIN [Concomitant]
     Active Substance: METFORMIN HYDROCHLORIDE\VILDAGLIPTIN
     Indication: Diabetes mellitus
     Dosage: UNK UNK, DAILY
     Route: 065
  4. DIMETHICONE\MEBEVERINE [Concomitant]
     Active Substance: DIMETHICONE\MEBEVERINE
     Indication: Product used for unknown indication
     Dosage: UNK UNK, UNKNOWN
  5. OSTEOCARE [CALCIUM;COLECALCIFEROL;MAGNESIUM;Z [Concomitant]
     Indication: Product used for unknown indication
     Dosage: UNK UNK, UNKNOWN
  6. CRESTOR [Concomitant]
     Active Substance: ROSUVASTATIN CALCIUM
     Indication: Product used for unknown indication
     Dosage: UNK UNK, UNKNOWN
  7. NEXIUM I.V. [Concomitant]
     Active Substance: ESOMEPRAZOLE SODIUM
     Indication: Product used for unknown indication
     Dosage: UNK UNK, UNKNOWN
  8. VITAMIN D NOS [Concomitant]
     Active Substance: CHOLECALCIFEROL\ERGOCALCIFEROL
     Indication: Product used for unknown indication
     Dosage: UNK UNK, UNKNOWN

REACTIONS (14)
  - Metabolic acidosis [Fatal]
  - Sepsis [Fatal]
  - Blood creatinine increased [Fatal]
  - Platelet count decreased [Fatal]
  - Hypotension [Fatal]
  - Electrolyte imbalance [Fatal]
  - Blood urea increased [Fatal]
  - Coma [Fatal]
  - General physical health deterioration [Fatal]
  - Disturbance in attention [Recovering/Resolving]
  - Decreased appetite [Recovering/Resolving]
  - Nausea [Recovering/Resolving]
  - Fatigue [Recovering/Resolving]
  - Off label use [Recovered/Resolved]

NARRATIVE: CASE EVENT DATE: 20251001
